FAERS Safety Report 12301316 (Version 1)
Quarter: 2016Q2

REPORT INFORMATION
  Report Type: Spontaneous
  Country: CH (occurrence: DE)
  Receive Date: 20160425
  Receipt Date: 20160425
  Transmission Date: 20160815
  Serious: Yes (Other)
  Sender: FDA-Public Use
  Company Number: CH-LPDUSPRD-20160328

PATIENT
  Age: 32 Year
  Sex: Female

DRUGS (1)
  1. FERINJECT [Suspect]
     Active Substance: FERRIC CARBOXYMALTOSE
     Dosage: 1000 MG IN 100 ML NACL
     Route: 041
     Dates: start: 20160401

REACTIONS (6)
  - Tremor [Unknown]
  - Erythema [Unknown]
  - Chills [Unknown]
  - Pruritus [Unknown]
  - Feeling cold [Unknown]
  - Urticaria [Unknown]

NARRATIVE: CASE EVENT DATE: 20160401
